FAERS Safety Report 14648755 (Version 4)
Quarter: 2018Q3

REPORT INFORMATION
  Report Type: Spontaneous
  Country: FR (occurrence: FR)
  Receive Date: 20180316
  Receipt Date: 20180711
  Transmission Date: 20181010
  Serious: Yes (Other)
  Sender: FDA-Public Use
  Company Number: GB-SA-2018SA062834

PATIENT
  Age: 60 Year
  Sex: Male

DRUGS (7)
  1. FLUTICASONE. [Suspect]
     Active Substance: FLUTICASONE
     Dosage: 1000 UG,QD
     Route: 045
  2. SALMETEROL [Suspect]
     Active Substance: SALMETEROL
     Dosage: UNK (6 PUFFS/DAY; 100 ?G/DAY)
     Route: 065
  3. LEVOCETIRIZINE [Suspect]
     Active Substance: LEVOCETIRIZINE
     Dosage: 5 MG,QD
     Route: 065
  4. AZITHROMYCIN ANHYDROUS. [Suspect]
     Active Substance: AZITHROMYCIN ANHYDROUS
     Indication: PROPHYLAXIS
     Dosage: 250 MG, BID
     Route: 065
  5. FLUTICASONE. [Suspect]
     Active Substance: FLUTICASONE
     Dosage: UNK (55G/DAY)
     Route: 045
  6. MONTELUKAST [Suspect]
     Active Substance: MONTELUKAST SODIUM
     Dosage: 10 MG,QD
     Route: 065
  7. SALBUTAMOL SULFATE [Suspect]
     Active Substance: ALBUTEROL SULFATE
     Dosage: 6 DF, QD
     Route: 065

REACTIONS (5)
  - Asthma [Recovering/Resolving]
  - Hypogammaglobulinaemia [Unknown]
  - Sinusitis [Unknown]
  - Drug ineffective [Unknown]
  - Lung infection [Unknown]
